FAERS Safety Report 13536696 (Version 1)
Quarter: 2017Q2

REPORT INFORMATION
  Report Type: Spontaneous
  Country: US (occurrence: US)
  Receive Date: 20170511
  Receipt Date: 20170511
  Transmission Date: 20170830
  Serious: Yes (Other)
  Sender: FDA-Public Use
  Company Number: US-SA-2017SA081522

PATIENT
  Age: 48 Year
  Sex: Female

DRUGS (1)
  1. INSULIN GLARGINE [Suspect]
     Active Substance: INSULIN GLARGINE
     Indication: TYPE 1 DIABETES MELLITUS
     Route: 065

REACTIONS (6)
  - Pollakiuria [Unknown]
  - Blood pH decreased [Unknown]
  - Inappropriate schedule of drug administration [Unknown]
  - Thirst [Unknown]
  - Diabetic ketoacidosis [Unknown]
  - Blood bicarbonate decreased [Unknown]
